FAERS Safety Report 4924011-2 (Version None)
Quarter: 2006Q1

REPORT INFORMATION
  Report Type: 
  Country: None (occurrence: None)
  Receive Date: 20060227
  Receipt Date: 20051114
  Transmission Date: 20060701
  Serious: Yes (Hospitalization, Other)
  Sender: FDA-Public Use
  Company Number: US-MERCK-0511USA02734

PATIENT
  Age: 60 Year
  Sex: Female

DRUGS (8)
  1. VIOXX [Suspect]
     Route: 048
     Dates: start: 20030701
  2. DIOVAN [Concomitant]
     Route: 048
  3. NORVASC [Concomitant]
     Route: 048
  4. PLENDIL [Concomitant]
     Route: 048
  5. COREG [Concomitant]
     Route: 048
  6. DARVOCET-N 50 [Concomitant]
     Route: 065
  7. CLONIDINE [Concomitant]
     Route: 065
  8. ZOLOFT [Concomitant]
     Route: 048

REACTIONS (14)
  - ANHEDONIA [None]
  - BACK PAIN [None]
  - CARDIAC FAILURE CONGESTIVE [None]
  - CEREBROVASCULAR ACCIDENT [None]
  - DEEP VEIN THROMBOSIS [None]
  - ENCEPHALOPATHY [None]
  - HEADACHE [None]
  - HYPERTENSIVE EMERGENCY [None]
  - MYOCARDIAL INFARCTION [None]
  - PITTING OEDEMA [None]
  - PULMONARY EMBOLISM [None]
  - RENAL FAILURE [None]
  - SINUS CONGESTION [None]
  - THROMBOSIS [None]
